FAERS Safety Report 7092996-7 (Version None)
Quarter: 2010Q4

REPORT INFORMATION
  Report Type: 
  Country: None (occurrence: None)
  Receive Date: 20101110
  Receipt Date: 20080728
  Transmission Date: 20110411
  Serious: No
  Sender: FDA-Public Use
  Company Number: US-KINGPHARMUSA00001-K200800896

PATIENT
  Age: 58 Year
  Sex: Female
  Weight: 49.887 kg

DRUGS (3)
  1. LEVOXYL [Suspect]
     Indication: THYROIDECTOMY
     Dosage: 100 MCG, QOD
     Route: 048
     Dates: start: 19980101
  2. LEVOXYL [Suspect]
     Dosage: 112 MCG, QOD
     Route: 048
     Dates: start: 19980101
  3. VITAMIN B-12 [Concomitant]

REACTIONS (5)
  - ALOPECIA [None]
  - ANXIETY [None]
  - DRUG INEFFECTIVE [None]
  - NIGHT SWEATS [None]
  - THYROID FUNCTION TEST ABNORMAL [None]
